FAERS Safety Report 18209407 (Version 3)
Quarter: 2020Q4

REPORT INFORMATION
  Report Type: Spontaneous
  Country: GR (occurrence: GR)
  Receive Date: 20200828
  Receipt Date: 20201113
  Transmission Date: 20210113
  Serious: Yes (Hospitalization, Other)
  Sender: FDA-Public Use
  Company Number: GR-PFIZER INC-2020331232

PATIENT
  Age: 76 Year
  Sex: Male

DRUGS (9)
  1. FILICINE [Concomitant]
     Active Substance: FOLIC ACID
  2. MEDROL [Suspect]
     Active Substance: METHYLPREDNISOLONE
     Indication: PRODUCT USED FOR UNKNOWN INDICATION
     Dosage: 3 G, 1X/DAY
     Dates: start: 20200331, end: 20200401
  3. KEYTRUDA [Suspect]
     Active Substance: PEMBROLIZUMAB
     Indication: LUNG ADENOCARCINOMA
     Dosage: 200 MG, CYCLICAL (1 CYCLE COMBINATION OF PEMBROLIZUMAB + CARBOPLATIN + PEMETREXED)
     Dates: start: 20200316, end: 2020
  4. LIPITOR [Concomitant]
     Active Substance: ATORVASTATIN CALCIUM
  5. NORVASC [Concomitant]
     Active Substance: AMLODIPINE BESYLATE
     Indication: HYPERTENSION
  6. PARIET [Concomitant]
     Active Substance: RABEPRAZOLE SODIUM
  7. CARBOPLATIN. [Suspect]
     Active Substance: CARBOPLATIN
     Indication: LUNG ADENOCARCINOMA
     Dosage: 4 CHEMOTHERAPY CYCLES
  8. PEMETREXED DISODIUM [Suspect]
     Active Substance: PEMETREXED DISODIUM
     Dosage: 1 CYCLE COMBINATION OF PEMBROLIZUMAB + CARBOPLATIN + PEMETREXED
     Dates: start: 20200316
  9. CATAPRES [Concomitant]
     Active Substance: CLONIDINE HYDROCHLORIDE
     Indication: HYPERTENSION

REACTIONS (5)
  - Diabetes mellitus [Recovering/Resolving]
  - Malignant neoplasm progression [Unknown]
  - Therapy partial responder [Unknown]
  - Autoimmune haemolytic anaemia [Recovered/Resolved]
  - Acute kidney injury [Unknown]

NARRATIVE: CASE EVENT DATE: 2020
